FAERS Safety Report 14646622 (Version 1)
Quarter: 2018Q1

REPORT INFORMATION
  Report Type: Spontaneous
  Country: FR (occurrence: FR)
  Receive Date: 20180316
  Receipt Date: 20180316
  Transmission Date: 20180509
  Serious: Yes (Hospitalization, Other)
  Sender: FDA-Public Use
  Company Number: PHHY2017FR192395

PATIENT
  Age: 68 Year
  Sex: Female

DRUGS (33)
  1. TACROLIMUS. [Suspect]
     Active Substance: TACROLIMUS
     Indication: RENAL TRANSPLANT
     Dosage: 1.5 MG, UNK
     Route: 048
  2. TACROLIMUS. [Suspect]
     Active Substance: TACROLIMUS
     Dosage: 5 MG, QD
     Route: 048
     Dates: start: 20170720
  3. CELLCEPT [Concomitant]
     Active Substance: MYCOPHENOLATE MOFETIL\MYCOPHENOLATE MOFETIL HYDROCHLORIDE
     Indication: PRODUCT USED FOR UNKNOWN INDICATION
     Dosage: UNK UNK, QD (3000 UNSPECIFIED UNIT, ONCE DAILY)
     Route: 065
     Dates: end: 20161003
  4. CORTANCYL [Concomitant]
     Active Substance: PREDNISONE
     Dosage: 11 UNSPECIFIED UNIT, ONCE DAILY
     Route: 065
     Dates: start: 20160913, end: 20160927
  5. CORTANCYL [Concomitant]
     Active Substance: PREDNISONE
     Dosage: 11 UNSPECIFIED UNIT, ONCE DAILY
     Route: 065
     Dates: start: 20161015, end: 20161021
  6. TACROLIMUS. [Suspect]
     Active Substance: TACROLIMUS
     Dosage: 2.5 MG, QD
     Route: 048
     Dates: start: 20161015
  7. TACROLIMUS. [Suspect]
     Active Substance: TACROLIMUS
     Dosage: 2 MG, QD
     Route: 048
     Dates: start: 20170219
  8. CORTANCYL [Concomitant]
     Active Substance: PREDNISONE
     Dosage: 15 UNSPECIFIED UNIT, ONCE DAILY
     Route: 065
     Dates: start: 20161009, end: 20161014
  9. TACROLIMUS. [Suspect]
     Active Substance: TACROLIMUS
     Dosage: 4 MG, QD
     Route: 048
     Dates: start: 20160830
  10. TACROLIMUS. [Suspect]
     Active Substance: TACROLIMUS
     Dosage: 2.5 MG, QD
     Route: 048
     Dates: start: 20170223
  11. CORTANCYL [Concomitant]
     Active Substance: PREDNISONE
     Dosage: 9 UNSPECIFIED UNIT, ONCE DAILY
     Route: 065
     Dates: start: 20161009, end: 20161014
  12. CORTANCYL [Concomitant]
     Active Substance: PREDNISONE
     Dosage: 5 UNSPECIFIED UNIT, ONCE DAILY
     Route: 065
     Dates: start: 20161201
  13. TACROLIMUS. [Suspect]
     Active Substance: TACROLIMUS
     Dosage: 5.5 MG, QD
     Route: 048
     Dates: start: 20170511
  14. CORTANCYL [Concomitant]
     Active Substance: PREDNISONE
     Dosage: 9 UNSPECIFIED UNIT, ONCE DAILY
     Route: 065
     Dates: start: 20161022, end: 20161029
  15. CORTANCYL [Concomitant]
     Active Substance: PREDNISONE
     Dosage: 7 UNSPECIFIED UNIT, ONCE DAILY
     Route: 065
     Dates: start: 20161030, end: 20161104
  16. TACROLIMUS. [Suspect]
     Active Substance: TACROLIMUS
     Dosage: 3.5 MG, QD
     Route: 048
     Dates: start: 20161126
  17. TACROLIMUS. [Suspect]
     Active Substance: TACROLIMUS
     Dosage: 4 MG, QD
     Route: 048
     Dates: start: 20170104, end: 20170216
  18. CORTANCYL [Concomitant]
     Active Substance: PREDNISONE
     Dosage: 9 UNSPECIFIED UNIT, ONCE DAILY
     Route: 065
     Dates: start: 20160928, end: 20161008
  19. CORTANCYL [Concomitant]
     Active Substance: PREDNISONE
     Dosage: 5 UNSPECIFIED UNIT, ONCE DAILY
     Route: 065
     Dates: start: 20161105, end: 20161124
  20. AUGMENTIN [Concomitant]
     Active Substance: AMOXICILLIN\CLAVULANATE POTASSIUM
     Indication: PRODUCT USED FOR UNKNOWN INDICATION
     Dosage: UNK
     Route: 065
  21. TACROLIMUS. [Suspect]
     Active Substance: TACROLIMUS
     Dosage: 3 MG, QD
     Route: 048
     Dates: start: 20161115
  22. TACROLIMUS. [Suspect]
     Active Substance: TACROLIMUS
     Dosage: 3.5 MG, QD
     Route: 048
     Dates: start: 20170323
  23. TACROLIMUS. [Suspect]
     Active Substance: TACROLIMUS
     Dosage: 4.5 MG, QD
     Route: 048
     Dates: start: 20170328
  24. CELLCEPT [Concomitant]
     Active Substance: MYCOPHENOLATE MOFETIL\MYCOPHENOLATE MOFETIL HYDROCHLORIDE
     Dosage: 1000 UNK, (1000 UNSPECIFIED UNIT, ONCE DAILY)
     Route: 065
     Dates: start: 20161015, end: 20170104
  25. IMUREL [Concomitant]
     Active Substance: AZATHIOPRINE SODIUM
     Indication: IMMUNOSUPPRESSION
     Dosage: 50 UNSPECIFIED UNIT, ONCE DAILY
     Route: 065
     Dates: start: 20170105
  26. TACROLIMUS. [Suspect]
     Active Substance: TACROLIMUS
     Dosage: 3 MG, QD
     Route: 048
     Dates: start: 20161003, end: 20161014
  27. TACROLIMUS. [Suspect]
     Active Substance: TACROLIMUS
     Dosage: 4.5 MG, QD
     Route: 048
     Dates: start: 20170721
  28. FOSFOMYCIN [Concomitant]
     Active Substance: FOSFOMYCIN
     Indication: PRODUCT USED FOR UNKNOWN INDICATION
     Dosage: UNK
     Route: 065
  29. CORTANCYL [Concomitant]
     Active Substance: PREDNISONE
     Dosage: 5 UNSPECIFIED UNIT, ONCE DAILY
     Route: 065
     Dates: start: 20161125, end: 20161130
  30. TACROLIMUS. [Suspect]
     Active Substance: TACROLIMUS
     Dosage: 4 MG, QD
     Route: 048
     Dates: start: 20161201
  31. TACROLIMUS. [Suspect]
     Active Substance: TACROLIMUS
     Dosage: 3 MG, QD
     Route: 048
     Dates: start: 20170216
  32. CELLCEPT [Concomitant]
     Active Substance: MYCOPHENOLATE MOFETIL\MYCOPHENOLATE MOFETIL HYDROCHLORIDE
     Dosage: UNK (2000 UNSPECIFIED UNIT, ONCE DAILY)
     Route: 065
     Dates: start: 20161004, end: 20161014
  33. CORTANCYL [Concomitant]
     Active Substance: PREDNISONE
     Indication: IMMUNOSUPPRESSION
     Dosage: 13 UNSPECIFIED UNIT, ONCE DAILY
     Route: 065
     Dates: start: 20160904, end: 20160912

REACTIONS (5)
  - Blood creatinine increased [Unknown]
  - General physical health deterioration [Recovered/Resolved]
  - Overdose [Unknown]
  - Asthenia [Recovered/Resolved]
  - Dysphagia [Recovered/Resolved]

NARRATIVE: CASE EVENT DATE: 20161003
